FAERS Safety Report 6085505-2 (Version None)
Quarter: 2009Q1

REPORT INFORMATION
  Report Type: 
  Country: None (occurrence: None)
  Receive Date: 20090220
  Receipt Date: 20040805
  Transmission Date: 20090719
  Serious: Yes (Hospitalization)
  Sender: FDA-Public Use
  Company Number: US-BAXTER-2009BH001929

PATIENT

DRUGS (2)
  1. MORPHINE SULFATE [Suspect]
     Indication: PAIN
     Route: 042
  2. MORPHINE SULFATE [Suspect]
     Route: 048

REACTIONS (4)
  - BLOOD PRESSURE DECREASED [None]
  - HALLUCINATION [None]
  - HEART RATE INCREASED [None]
  - OVERDOSE [None]
